FAERS Safety Report 7122246-4 (Version None)
Quarter: 2010Q4

REPORT INFORMATION
  Report Type: 
  Country: None (occurrence: None)
  Receive Date: 20101122
  Receipt Date: 20101122
  Transmission Date: 20110411
  Serious: No
  Sender: FDA-Public Use
  Company Number: None

PATIENT
  Age: 30 Year
  Sex: Female
  Weight: 54.4316 kg

DRUGS (1)
  1. TERBUTALINE SULFATE [Suspect]
     Indication: PREMATURE LABOUR
     Dates: start: 19950101, end: 19950312

REACTIONS (5)
  - AUTISM [None]
  - INDUCED LABOUR [None]
  - MATERNAL DRUGS AFFECTING FOETUS [None]
  - SCREAMING [None]
  - SLEEP DISORDER [None]
